FAERS Safety Report 5218907-4 (Version None)
Quarter: 2007Q1

REPORT INFORMATION
  Report Type: 
  Country: None (occurrence: None)
  Receive Date: 20070125
  Receipt Date: 20070116
  Transmission Date: 20070707
  Serious: Yes (Hospitalization)
  Sender: FDA-Public Use
  Company Number: US-BAYER-200710177BCC

PATIENT
  Age: 58 Year
  Sex: Female
  Weight: 74 kg

DRUGS (5)
  1. ALEVE [Suspect]
     Indication: HEADACHE
     Route: 048
     Dates: end: 20060901
  2. LEXAPRO [Suspect]
     Indication: DEPRESSION
     Dosage: TOTAL DAILY DOSE: 50 MG  UNIT DOSE: 50 MG
     Route: 048
     Dates: start: 20030909, end: 20060922
  3. EXCEDRIN (MIGRAINE) [Suspect]
     Indication: DRUG USE FOR UNKNOWN INDICATION
     Route: 048
  4. BUSPAR [Concomitant]
  5. TRAZODONE HCL [Concomitant]

REACTIONS (15)
  - ABDOMINAL PAIN LOWER [None]
  - ANOREXIA [None]
  - BLOOD CREATININE INCREASED [None]
  - CONSTIPATION [None]
  - FLANK PAIN [None]
  - HAEMATURIA [None]
  - HYPERTENSION [None]
  - NASAL CONGESTION [None]
  - NASAL DISCOMFORT [None]
  - NAUSEA [None]
  - NEPHROLITHIASIS [None]
  - RENAL FAILURE [None]
  - RHINORRHOEA [None]
  - SINUS HEADACHE [None]
  - SINUSITIS [None]
